FAERS Safety Report 5389467-2 (Version None)
Quarter: 2007Q3

REPORT INFORMATION
  Report Type: 
  Country: None (occurrence: None)
  Receive Date: 20070717
  Receipt Date: 20070712
  Transmission Date: 20080115
  Serious: Yes (Death, Life-Threatening, Hospitalization)
  Sender: FDA-Public Use
  Company Number: US-ASTRAZENECA-2007UW14469

PATIENT
  Age: 50 Year
  Sex: Male
  Weight: 113.4 kg

DRUGS (9)
  1. SEROQUEL [Suspect]
     Indication: BIPOLAR DISORDER
     Dosage: 200 TABLETS
     Route: 048
  2. ATENOLOL [Suspect]
     Dosage: 25 AND 50 MG
     Route: 048
  3. CLONAZEPAM [Suspect]
  4. CYMBALTA [Concomitant]
  5. LAMICTAL [Concomitant]
  6. WELLBUTRIN [Concomitant]
  7. LITHIUM CARBONATE [Concomitant]
  8. TRAMADOL HCL [Concomitant]
  9. TIZANIDINE HCL [Concomitant]

REACTIONS (10)
  - ACUTE RESPIRATORY FAILURE [None]
  - BRADYCARDIA [None]
  - COMA [None]
  - HYPERTENSION [None]
  - HYPOTENSION [None]
  - HYPOTHERMIA [None]
  - INCONTINENCE [None]
  - MEDICATION ERROR [None]
  - MULTIPLE DRUG OVERDOSE INTENTIONAL [None]
  - SUICIDE ATTEMPT [None]
